FAERS Safety Report 22196108 (Version 2)
Quarter: 2023Q2

REPORT INFORMATION
  Report Type: Spontaneous
  Country: US (occurrence: US)
  Receive Date: 20230411
  Receipt Date: 20230623
  Transmission Date: 20230722
  Serious: Yes (Other)
  Sender: FDA-Public Use
  Company Number: US-AMGEN-USASP2023061710

PATIENT

DRUGS (1)
  1. BLINCYTO [Suspect]
     Active Substance: BLINATUMOMAB
     Indication: B precursor type acute leukaemia
     Dosage: UNK
     Route: 065

REACTIONS (14)
  - Panniculitis [Unknown]
  - Immune effector cell-associated neurotoxicity syndrome [Unknown]
  - Cytokine release syndrome [Unknown]
  - B precursor type acute leukaemia [Unknown]
  - Leukaemic infiltration extramedullary [Unknown]
  - Psoriasis [Unknown]
  - Seborrhoeic dermatitis [Unknown]
  - Acne [Unknown]
  - Nail dystrophy [Unknown]
  - Eczema [Unknown]
  - Dermatitis contact [Unknown]
  - Erythema [Unknown]
  - Rash papular [Unknown]
  - Folliculitis [Unknown]
